FAERS Safety Report 6250147-2 (Version None)
Quarter: 2009Q2

REPORT INFORMATION
  Report Type: 
  Country: None (occurrence: None)
  Receive Date: 20090626
  Receipt Date: 20090622
  Transmission Date: 20091009
  Serious: Yes (Other)
  Sender: FDA-Public Use
  Company Number: 2009SP013775

PATIENT
  Sex: Female

DRUGS (3)
  1. MIRALAX [Suspect]
     Indication: COLONOSCOPY
     Dosage: ONCE;PO
     Route: 048
  2. DULCOLAX [Suspect]
     Indication: COLONOSCOPY
     Dosage: PO
     Route: 048
  3. DULCOLAX [Suspect]
     Indication: OFF LABEL USE
     Dosage: PO
     Route: 048

REACTIONS (4)
  - BLOOD PRESSURE DECREASED [None]
  - OEDEMA MOUTH [None]
  - PALATAL OEDEMA [None]
  - PHARYNGEAL OEDEMA [None]
